FAERS Safety Report 16762168 (Version 1)
Quarter: 2019Q3

REPORT INFORMATION
  Report Type: Report from Study
  Country: None (occurrence: US)
  Receive Date: 20190830
  Receipt Date: 20190830
  Transmission Date: 20191005
  Serious: Yes (Other)
  Sender: FDA-Public Use
  Company Number: US-ABBVIE-19K-163-2906469-00

PATIENT
  Age: 77 Year
  Sex: Female

DRUGS (1)
  1. CREON [Suspect]
     Active Substance: PANCRELIPASE AMYLASE\PANCRELIPASE LIPASE\PANCRELIPASE PROTEASE
     Indication: PRODUCT USED FOR UNKNOWN INDICATION
     Route: 048

REACTIONS (7)
  - Pancreaticoduodenectomy [Unknown]
  - Eye operation [Unknown]
  - Gastrointestinal haemorrhage [Unknown]
  - Hysterectomy [Unknown]
  - Cholecystectomy [Unknown]
  - Vascular operation [Unknown]
  - Abdominal operation [Unknown]

NARRATIVE: CASE EVENT DATE: 2017
